FAERS Safety Report 10662387 (Version 2)
Quarter: 2015Q1

REPORT INFORMATION
  Report Type: Spontaneous
  Country: US (occurrence: US)
  Receive Date: 20141218
  Receipt Date: 20150119
  Transmission Date: 20150720
  Serious: No
  Sender: FDA-Public Use
  Company Number: US-PFIZER INC-2014344067

PATIENT
  Age: 61 Year
  Sex: Female

DRUGS (6)
  1. VFEND [Suspect]
     Active Substance: VORICONAZOLE
     Dosage: 350 MG (200 + 50X3), 2X/DAY
     Route: 048
  2. TACROLIMUS. [Concomitant]
     Active Substance: TACROLIMUS
     Dosage: UNK
  3. DAPSONE. [Concomitant]
     Active Substance: DAPSONE
     Dosage: UNK
  4. CIPROFLOXACIN. [Concomitant]
     Active Substance: CIPROFLOXACIN
     Dosage: UNK
  5. GANCICLOVIR. [Concomitant]
     Active Substance: GANCICLOVIR
     Dosage: UNK
  6. PREDNISONE. [Concomitant]
     Active Substance: PREDNISONE
     Dosage: UNK

REACTIONS (1)
  - No adverse event [Unknown]
